FAERS Safety Report 10763004 (Version 4)
Quarter: 2016Q2

REPORT INFORMATION
  Report Type: Spontaneous
  Country: US (occurrence: US)
  Receive Date: 20150204
  Receipt Date: 20160603
  Transmission Date: 20160815
  Serious: Yes (Hospitalization, Other)
  Sender: FDA-Public Use
  Company Number: US-009507513-1502USA001597

PATIENT
  Sex: Female

DRUGS (7)
  1. BONIVA [Suspect]
     Active Substance: IBANDRONATE SODIUM
     Indication: OSTEOPOROSIS
     Dosage: 150 MG, QM
     Route: 048
     Dates: start: 200511, end: 200601
  2. FOSAMAX [Suspect]
     Active Substance: ALENDRONATE SODIUM
     Dosage: 70 MG, QW
     Route: 048
     Dates: start: 200601, end: 200803
  3. VITAMINS (UNSPECIFIED) [Concomitant]
     Active Substance: VITAMINS
     Indication: PRODUCT USED FOR UNKNOWN INDICATION
     Dosage: ONCE EVERY TWO OR THREE TIMES A WEEK
     Route: 065
     Dates: start: 2000
  4. FOSAMAX [Suspect]
     Active Substance: ALENDRONATE SODIUM
     Dosage: 10 MG, QW
     Route: 048
     Dates: end: 2010
  5. ALENDRONATE SODIUM. [Suspect]
     Active Substance: ALENDRONATE SODIUM
     Indication: OSTEOPOROSIS
     Dosage: 70 MG, QW
     Route: 048
     Dates: start: 200803, end: 200912
  6. FOSAMAX [Suspect]
     Active Substance: ALENDRONATE SODIUM
     Indication: OSTEOPOROSIS
     Dosage: 70 MG, QW
     Route: 048
     Dates: start: 2002, end: 200511
  7. VITAMIN D [Concomitant]
     Active Substance: CHOLECALCIFEROL
     Indication: PRODUCT USED FOR UNKNOWN INDICATION
     Dosage: 1000 IU, QD
     Route: 065
     Dates: start: 2000

REACTIONS (10)
  - Insomnia [Unknown]
  - Pain in extremity [Unknown]
  - Migraine [Unknown]
  - Impaired healing [Unknown]
  - Femur fracture [Unknown]
  - Arthralgia [Unknown]
  - Sciatica [Unknown]
  - Inappropriate schedule of drug administration [Recovered/Resolved]
  - Osteoporosis [Unknown]
  - Prescribed underdose [Recovered/Resolved]

NARRATIVE: CASE EVENT DATE: 200903
